FAERS Safety Report 4300579-4 (Version None)
Quarter: 2004Q1

REPORT INFORMATION
  Report Type: 
  Country: None (occurrence: None)
  Receive Date: 20040218
  Receipt Date: 20040203
  Transmission Date: 20041129
  Serious: Yes (Hospitalization)
  Sender: FDA-Public Use
  Company Number: 2002IM000882

PATIENT
  Age: 55 Year
  Sex: Female
  Weight: 69.5 kg

DRUGS (3)
  1. ACTIMMUNE [Suspect]
     Indication: HEPATIC CIRRHOSIS
     Dosage: 100 UG; TIW; SUBCUTANEOUS
     Route: 058
     Dates: start: 20021030, end: 20021111
  2. ACTIMMUNE [Suspect]
     Indication: HEPATIC FIBROSIS
     Dosage: 100 UG; TIW; SUBCUTANEOUS
     Route: 058
     Dates: start: 20021030, end: 20021111
  3. ACTIMMUNE [Suspect]
     Indication: HEPATITIS C
     Dosage: 100 UG; TIW; SUBCUTANEOUS
     Route: 058
     Dates: start: 20021030, end: 20021111

REACTIONS (9)
  - ASCITES [None]
  - ASTHENIA [None]
  - CONFUSIONAL STATE [None]
  - DYSPNOEA [None]
  - FATIGUE [None]
  - HEPATIC ENCEPHALOPATHY [None]
  - HEPATIC FAILURE [None]
  - LIVER TRANSPLANT [None]
  - PRURITUS [None]
